FAERS Safety Report 6626042-3 (Version None)
Quarter: 2010Q1

REPORT INFORMATION
  Report Type: 
  Country: None (occurrence: None)
  Receive Date: 20100310
  Receipt Date: 20100303
  Transmission Date: 20100710
  Serious: Yes (Congenital Anomaly)
  Sender: FDA-Public Use
  Company Number: A0693649A

PATIENT
  Sex: Female

DRUGS (8)
  1. PAXIL [Suspect]
     Indication: DEPRESSION
     Dates: start: 20031209, end: 20040301
  2. ANTIBIOTIC [Concomitant]
     Dates: start: 20030907
  3. ANTIBIOTIC [Concomitant]
     Dates: start: 20040229
  4. VITAMIN TAB [Concomitant]
  5. SEREVENT [Concomitant]
     Dates: start: 20040206
  6. TERBUTALINE SULFATE [Concomitant]
     Dates: start: 20040206
  7. DICYCLOMINE [Concomitant]
     Dates: start: 20031208
  8. ZOLOFT [Concomitant]
     Dates: start: 20031208

REACTIONS (15)
  - ABNORMAL BEHAVIOUR [None]
  - BRAIN HYPOXIA [None]
  - BRAIN INJURY [None]
  - CARDIAC FAILURE CONGESTIVE [None]
  - CARDIOVASCULAR DISORDER [None]
  - DEAFNESS [None]
  - DEVELOPMENTAL DELAY [None]
  - DRUG EXPOSURE DURING PREGNANCY [None]
  - GASTROOESOPHAGEAL REFLUX DISEASE [None]
  - MOTOR DYSFUNCTION [None]
  - NERVOUS SYSTEM DISORDER [None]
  - PERSISTENT FOETAL CIRCULATION [None]
  - PULMONARY VALVE INCOMPETENCE [None]
  - SPEECH DISORDER DEVELOPMENTAL [None]
  - VENTRICULAR SEPTAL DEFECT [None]
